FAERS Safety Report 4642174-3 (Version None)
Quarter: 2005Q2

REPORT INFORMATION
  Report Type: 
  Country: None (occurrence: None)
  Receive Date: 20050420
  Receipt Date: 20050407
  Transmission Date: 20051028
  Serious: Yes (Hospitalization)
  Sender: FDA-Public Use
  Company Number: USA-2005-0019154

PATIENT
  Age: 64 Year
  Sex: Male
  Weight: 107.9 kg

DRUGS (5)
  1. SPECTRACEF [Suspect]
     Indication: OFF LABEL USE
     Dosage: 200 MG, BID
     Dates: start: 20050217, end: 20050227
  2. NEURONTIN [Concomitant]
  3. PREVACID [Concomitant]
  4. TENORMIN [Concomitant]
  5. ASPIRIN [Concomitant]

REACTIONS (4)
  - ABDOMINAL PAIN [None]
  - CLOSTRIDIUM COLITIS [None]
  - DEHYDRATION [None]
  - LEUKOCYTOSIS [None]
